FAERS Safety Report 6811036-5 (Version None)
Quarter: 2010Q2

REPORT INFORMATION
  Report Type: 
  Country: None (occurrence: None)
  Receive Date: 20100630
  Receipt Date: 20080917
  Transmission Date: 20101027
  Serious: No
  Sender: FDA-Public Use
  Company Number: US-PFIZER INC-2009165941

PATIENT
  Sex: Female

DRUGS (2)
  1. NICOTROL [Suspect]
     Dosage: UNK
  2. FLAGYL [Suspect]
     Dosage: UNK

REACTIONS (2)
  - NAUSEA [None]
  - VOMITING [None]
